FAERS Safety Report 6422519-4 (Version None)
Quarter: 2009Q4

REPORT INFORMATION
  Report Type: 
  Country: None (occurrence: None)
  Receive Date: 20091102
  Receipt Date: 20091022
  Transmission Date: 20100525
  Serious: No
  Sender: FDA-Public Use
  Company Number: DE-BIOGENIDEC-2009BI027465

PATIENT
  Age: 42 Year
  Sex: Female
  Weight: 65 kg

DRUGS (2)
  1. TYSABRI [Suspect]
     Indication: RELAPSING-REMITTING MULTIPLE SCLEROSIS
     Route: 042
     Dates: start: 20080805, end: 20090828
  2. TYSABRI [Suspect]
     Route: 042
     Dates: start: 20090904

REACTIONS (3)
  - AFFECTIVE DISORDER [None]
  - IRRITABILITY [None]
  - MOOD SWINGS [None]
